FAERS Safety Report 12985658 (Version 1)
Quarter: 2016Q4

REPORT INFORMATION
  Report Type: Spontaneous
  Country: IT (occurrence: IT)
  Receive Date: 20161130
  Receipt Date: 20161130
  Transmission Date: 20170207
  Serious: Yes (Hospitalization)
  Sender: FDA-Public Use
  Company Number: IT-009507513-1611ITA013021

PATIENT
  Age: 26 Year
  Sex: Male
  Weight: 81 kg

DRUGS (1)
  1. TIMOTHY GRASS POLLEN ALLERGEN EXTRACT [Suspect]
     Active Substance: PHLEUM PRATENSE POLLEN
     Indication: RHINITIS ALLERGIC
     Dosage: 75000 SQ-T, DAILY
     Route: 060
     Dates: start: 20161113, end: 20161119

REACTIONS (3)
  - Laryngospasm [Recovered/Resolved]
  - Pruritus generalised [Recovered/Resolved]
  - Pruritus [Recovered/Resolved]

NARRATIVE: CASE EVENT DATE: 20161119
